FAERS Safety Report 5413873-0 (Version None)
Quarter: 2007Q3

REPORT INFORMATION
  Report Type: 
  Country: None (occurrence: None)
  Receive Date: 20070814
  Receipt Date: 20070809
  Transmission Date: 20080115
  Serious: Yes (Death, Hospitalization)
  Sender: FDA-Public Use
  Company Number: US-JNJFOC-20070802131

PATIENT
  Sex: Female

DRUGS (3)
  1. EXTRA STRENGTH TYLENOL PM VANILLA [Suspect]
     Indication: INTENTIONAL OVERDOSE
     Dosage: 6 BOTTLES
  2. BENADRYL [Suspect]
     Indication: INTENTIONAL OVERDOSE
     Dosage: 2 BOTTLES
  3. ANTIPSYCHOTIC MEDICATION [Concomitant]
     Indication: BIPOLAR DISORDER

REACTIONS (2)
  - DRUG ADMINISTRATION ERROR [None]
  - MULTIPLE DRUG OVERDOSE INTENTIONAL [None]
